FAERS Safety Report 10268441 (Version 1)
Quarter: 2014Q2

REPORT INFORMATION
  Report Type: Spontaneous
  Country: US (occurrence: None)
  Receive Date: 20140626
  Receipt Date: 20140626
  Transmission Date: 20141212
  Serious: Yes (Hospitalization)
  Sender: FDA-Public Use
  Company Number: None

PATIENT
  Age: 71 Year
  Sex: Male

DRUGS (10)
  1. LETAIRIS 10MG GILEAD [Suspect]
     Indication: PULMONARY ARTERIAL HYPERTENSION
     Route: 048
     Dates: start: 2012
  2. REMODULIN [Concomitant]
  3. VIAGRA [Concomitant]
  4. LASIX [Concomitant]
  5. PREDNISONE [Concomitant]
  6. PROAIR HFA [Concomitant]
  7. QVAR [Concomitant]
  8. ATROVENT NASAL SPRAY [Concomitant]
  9. PRILOSEC [Concomitant]
  10. PERCOCET [Concomitant]

REACTIONS (3)
  - Renal failure acute [None]
  - Cardiac failure [None]
  - Dyspnoea [None]
